FAERS Safety Report 20446160 (Version 1)
Quarter: 2022Q1

REPORT INFORMATION
  Report Type: Spontaneous
  Country: IN (occurrence: IN)
  Receive Date: 20220208
  Receipt Date: 20220208
  Transmission Date: 20220423
  Serious: Yes (Death)
  Sender: FDA-Public Use
  Company Number: IN-PFIZER INC-2020087270

PATIENT
  Age: 58 Year
  Sex: Male

DRUGS (2)
  1. SUTENT [Suspect]
     Active Substance: SUNITINIB MALATE
     Indication: Metastatic renal cell carcinoma
     Dosage: 50 MG, CYCLIC (ONCE A DAY; 10 DAYS ON AND 7 DAYS OFF)
     Route: 048
     Dates: start: 20140922
  2. SUTENT [Suspect]
     Active Substance: SUNITINIB MALATE
     Dosage: 50 MG, CYCLIC (ONCE A DAY; 2WEEKS ON AND 1 WEEK OFF)
     Route: 048

REACTIONS (8)
  - Death [Fatal]
  - Off label use [Unknown]
  - Peripheral swelling [Unknown]
  - Diarrhoea [Unknown]
  - Acidosis [Unknown]
  - Epistaxis [Unknown]
  - Blister [Unknown]
  - Pain [Unknown]
